FAERS Safety Report 4618902-X (Version None)
Quarter: 2005Q1

REPORT INFORMATION
  Report Type: 
  Country: None (occurrence: None)
  Receive Date: 20050323
  Receipt Date: 20050315
  Transmission Date: 20050727
  Serious: Yes (Death)
  Sender: FDA-Public Use
  Company Number: MOBN20050001

PATIENT
  Age: 43 Year
  Sex: Female

DRUGS (2)
  1. MOLINDONE 50 MG [Suspect]
     Indication: MENTAL DISORDER
     Dosage: 100 MG BID PO
     Route: 048
  2. LITHIUM CARBONATE [Suspect]
     Indication: MENTAL DISORDER
     Dosage: PO
     Route: 048

REACTIONS (8)
  - CARDIOMEGALY [None]
  - CIRCULATORY COLLAPSE [None]
  - COMPLETED SUICIDE [None]
  - DRUG TOXICITY [None]
  - HYPERTENSION [None]
  - HYPOTHYROIDISM [None]
  - INTENTIONAL MISUSE [None]
  - PYELONEPHRITIS CHRONIC [None]
